FAERS Safety Report 5743394-7 (Version None)
Quarter: 2008Q2

REPORT INFORMATION
  Report Type: 
  Country: None (occurrence: None)
  Receive Date: 20080515
  Receipt Date: 20080515
  Transmission Date: 20081010
  Serious: Yes (Other)
  Sender: FDA-Public Use
  Company Number: None

PATIENT
  Sex: Female
  Weight: 58.9676 kg

DRUGS (4)
  1. CHANTIX [Suspect]
     Indication: NICOTINE DEPENDENCE
     Dosage: 0.5 MG TABLET SID-3D/BID-4D PO
     Route: 048
     Dates: start: 20080401, end: 20080407
  2. CHANTIX [Suspect]
     Indication: SMOKING CESSATION THERAPY
     Dosage: 0.5 MG TABLET SID-3D/BID-4D PO
     Route: 048
     Dates: start: 20080401, end: 20080407
  3. CHANTIX [Suspect]
     Indication: NICOTINE DEPENDENCE
     Dosage: 1 MG TABLET BID FOR BALANCE PO
     Route: 048
     Dates: start: 20080408, end: 20080501
  4. CHANTIX [Suspect]
     Indication: SMOKING CESSATION THERAPY
     Dosage: 1 MG TABLET BID FOR BALANCE PO
     Route: 048
     Dates: start: 20080408, end: 20080501

REACTIONS (8)
  - BLISTER [None]
  - BURNING SENSATION [None]
  - DRUG HYPERSENSITIVITY [None]
  - ERYTHEMA [None]
  - NO THERAPEUTIC RESPONSE [None]
  - PRURITUS [None]
  - SCAB [None]
  - URTICARIA [None]
